FAERS Safety Report 15770055 (Version 1)
Quarter: 2018Q4

REPORT INFORMATION
  Report Type: Spontaneous
  Country: DE (occurrence: DE)
  Receive Date: 20181228
  Receipt Date: 20181228
  Transmission Date: 20190205
  Serious: Yes (Other)
  Sender: FDA-Public Use
  Company Number: DE-HIKMA PHARMACEUTICALS USA INC.-DE-H14001-18-09145

PATIENT
  Sex: Male

DRUGS (1)
  1. CIPROFLOXACIN. [Suspect]
     Active Substance: CIPROFLOXACIN
     Indication: PRODUCT USED FOR UNKNOWN INDICATION
     Dosage: ()
     Route: 065

REACTIONS (7)
  - Nervous system disorder [Unknown]
  - Tendon discomfort [Unknown]
  - Arthropathy [Unknown]
  - Renal disorder [Unknown]
  - Osteoarthritis [Unknown]
  - Tendon disorder [Unknown]
  - Von Willebrand^s disease [Unknown]
